FAERS Safety Report 22814365 (Version 3)
Quarter: 2024Q3

REPORT INFORMATION
  Report Type: Spontaneous
  Country: FR (occurrence: FR)
  Receive Date: 20230811
  Receipt Date: 20240814
  Transmission Date: 20241017
  Serious: Yes (Other)
  Sender: NORDIC PHARMA
  Company Number: FR-UCBSA-2023026287

PATIENT
  Sex: Female

DRUGS (23)
  1. METHOTREXATE [Suspect]
     Active Substance: METHOTREXATE
     Indication: Product used for unknown indication
     Dosage: 15 MILLIGRAM ONCE A WEEK IN PEN FOR INJECTION
     Route: 065
  2. METHOTREXATE [Suspect]
     Active Substance: METHOTREXATE
     Indication: Product used for unknown indication
     Dosage: 20 MILLIGRAM, WEEKLY (QW) (FOR 69- 62 KGS AND LM70)
     Route: 065
  3. DAFALGAN CODEINE [Concomitant]
     Active Substance: ACETAMINOPHEN\CODEINE PHOSPHATE
     Indication: Product used for unknown indication
     Dosage: UNK
  4. CIMZIA [Concomitant]
     Active Substance: CERTOLIZUMAB PEGOL
     Indication: Spondylitis
     Dosage: UNK
     Route: 065
     Dates: start: 20150827, end: 201702
  5. CIMZIA [Concomitant]
     Active Substance: CERTOLIZUMAB PEGOL
     Indication: Spondylitis
     Route: 065
     Dates: start: 20190104, end: 20190903
  6. CIMZIA [Concomitant]
     Active Substance: CERTOLIZUMAB PEGOL
     Indication: Spondylitis
     Dates: start: 20150324, end: 2015
  7. STELARA [Concomitant]
     Active Substance: USTEKINUMAB
     Indication: Product used for unknown indication
     Route: 065
  8. COSENTYX [Concomitant]
     Active Substance: SECUKINUMAB
     Indication: Product used for unknown indication
     Route: 065
     Dates: start: 201704
  9. COSENTYX [Concomitant]
     Active Substance: SECUKINUMAB
     Indication: Product used for unknown indication
     Dosage: 300 MILLIGRAM PER MONTH FOR 6 MONTHS
     Route: 065
     Dates: start: 201707
  10. SIMPONI [Concomitant]
     Active Substance: GOLIMUMAB
     Indication: Product used for unknown indication
     Route: 065
  11. ESOMEPRAZOLE [Concomitant]
     Active Substance: ESOMEPRAZOLE
     Indication: Gastrooesophageal reflux disease
     Route: 065
  12. EFFEXOR [Concomitant]
     Active Substance: VENLAFAXINE HYDROCHLORIDE
     Indication: Depression
     Dosage: 75 MILLIGRAM, 2X/DAY (BID)
     Route: 065
  13. NIFEDIPINE [Concomitant]
     Active Substance: NIFEDIPINE
     Indication: Raynaud^s phenomenon
     Route: 065
  14. PLAQUENIL [Concomitant]
     Active Substance: HYDROXYCHLOROQUINE SULFATE
     Indication: Product used for unknown indication
     Dosage: 400 MILLIGRAM, ONCE DAILY (QD)
     Route: 065
  15. PLAQUENIL [Concomitant]
     Active Substance: HYDROXYCHLOROQUINE SULFATE
     Indication: Product used for unknown indication
     Dosage: 200 MILLIGRAM, 2X/DAY (BID)
     Route: 065
     Dates: start: 202106
  16. ALPRAZOLAM [Concomitant]
     Active Substance: ALPRAZOLAM
     Indication: Depression
     Dosage: 0.50 ON REQUEST UP TO TWO TABLETS PER DAY
     Route: 065
  17. FOLIC ACID [Concomitant]
     Active Substance: FOLIC ACID
     Indication: Product used for unknown indication
     Dosage: 5 MG 1 TABLET ONCE A WEEK
     Route: 065
  18. PREDNISONE [Concomitant]
     Active Substance: PREDNISONE
     Indication: Product used for unknown indication
     Dosage: 5 MILLIGRAM, ONCE DAILY (QD)
     Route: 065
  19. DOLIPRANE [Concomitant]
     Active Substance: ACETAMINOPHEN
     Indication: Analgesic therapy
     Dosage: UNK (ON DEMAND)
     Route: 065
  20. DOLIPRANE [Concomitant]
     Active Substance: ACETAMINOPHEN
     Indication: Analgesic therapy
     Dosage: 500MG XJ PER DAY; EVERY DAY, DEPENDING ON ITS ACTIVITY.
  21. SULFARLEM (anethole trithione) [Concomitant]
     Indication: Product used for unknown indication
     Route: 065
  22. HYDROCORTISONE [Concomitant]
     Active Substance: HYDROCORTISONE\HYDROCORTISONE ACETATE
     Indication: Product used for unknown indication
     Dosage: 10 MILLIGRAM MORNING AND NOON
     Route: 065
  23. FENTANYL [Concomitant]
     Active Substance: FENTANYL\FENTANYL CITRATE
     Indication: Product used for unknown indication
     Route: 065

REACTIONS (27)
  - Ankylosing spondylitis [Unknown]
  - Asthenia [Unknown]
  - Photosensitivity reaction [Unknown]
  - Myelodysplastic syndrome [Unknown]
  - Epidural analgesia [Unknown]
  - Peripheral ischaemia [Unknown]
  - Inflammation [Unknown]
  - Surgery [Unknown]
  - Pain [Unknown]
  - Anaemia macrocytic [Unknown]
  - COVID-19 [Unknown]
  - Middle insomnia [Recovered/Resolved]
  - Gastrointestinal disorder [Unknown]
  - Hypovitaminosis [Unknown]
  - Sciatica [Unknown]
  - Spinal pain [Unknown]
  - Arthrodesis [Unknown]
  - Weight decreased [Unknown]
  - General physical health deterioration [Unknown]
  - Terminal insomnia [Unknown]
  - Scleroderma [Unknown]
  - Fatigue [Unknown]
  - Hysterectomy [Unknown]
  - Psoriasis [Unknown]
  - Back pain [Unknown]
  - Prolapse repair [Unknown]
  - Oophorectomy [Unknown]

NARRATIVE: CASE EVENT DATE: 20190711
